FAERS Safety Report 8168841-5 (Version None)
Quarter: 2012Q1

REPORT INFORMATION
  Report Type: 
  Country: None (occurrence: None)
  Receive Date: 20120227
  Receipt Date: 20120221
  Transmission Date: 20120608
  Serious: Yes (Other)
  Sender: FDA-Public Use
  Company Number: US-ABBOTT-11P-163-0874674-00

PATIENT
  Sex: Female
  Weight: 74.91 kg

DRUGS (5)
  1. HUMIRA [Suspect]
     Indication: RHEUMATOID ARTHRITIS
     Dates: start: 20100101, end: 20100101
  2. HUMIRA [Suspect]
     Indication: RHEUMATOID ARTHRITIS
     Dates: start: 20100101, end: 20110301
  3. TESTOSTERONE [Concomitant]
     Indication: HORMONE REPLACEMENT THERAPY
  4. PREMARIN [Concomitant]
     Indication: HORMONE REPLACEMENT THERAPY
  5. VITAMIN TAB [Concomitant]
     Indication: VITAMIN SUPPLEMENTATION

REACTIONS (11)
  - THYROGLOSSAL CYST [None]
  - PRODUCTIVE COUGH [None]
  - LOWER RESPIRATORY TRACT INFECTION [None]
  - BRONCHITIS [None]
  - WHEEZING [None]
  - INTERVERTEBRAL DISC PROTRUSION [None]
  - SIMPLEX VIRUS TEST POSITIVE [None]
  - THYROID DISORDER [None]
  - FATIGUE [None]
  - INFLUENZA [None]
  - COLONIC POLYP [None]
